FAERS Safety Report 4758872-7 (Version None)
Quarter: 2005Q3

REPORT INFORMATION
  Report Type: 
  Country: None (occurrence: None)
  Receive Date: 20050831
  Receipt Date: 20050825
  Transmission Date: 20060218
  Serious: Yes (Other)
  Sender: FDA-Public Use
  Company Number: GXKR2005US00631

PATIENT
  Age: 60 Year
  Sex: Female

DRUGS (3)
  1. HYDROCHLOROTHIAZIDE [Suspect]
     Indication: HYPERTENSION
     Dosage: 25 MG
  2. CARBAMAZEPINE [Suspect]
     Indication: PARTIAL SEIZURES
     Dosage: 200 MG, BID
  3. BETA BLOCKING AGENTS (NO INGREDIENTS/SUBSTANCES) [Concomitant]

REACTIONS (5)
  - DIZZINESS [None]
  - DRUG INTERACTION [None]
  - HYPONATRAEMIA [None]
  - LETHARGY [None]
  - SOMNOLENCE [None]
